FAERS Safety Report 8707525 (Version 3)
Quarter: 2013Q1

REPORT INFORMATION
  Report Type: Spontaneous
  Country: US (occurrence: US)
  Receive Date: 20120804
  Receipt Date: 20130128
  Transmission Date: 20140127
  Serious: Yes (Other)
  Sender: FDA-Public Use
  Company Number: US-ASTRAZENECA-2012SE52689

PATIENT
  Age: 65 Year
  Sex: Female
  Weight: 117.9 kg

DRUGS (29)
  1. ATACAND [Suspect]
     Indication: CARDIAC DISORDER
     Route: 048
     Dates: start: 2009
  2. ATACAND [Suspect]
     Indication: BLOOD PRESSURE ABNORMAL
     Route: 048
     Dates: start: 2009
  3. NEXIUM [Suspect]
     Indication: HIATUS HERNIA
     Route: 048
  4. TOPROL XL [Suspect]
     Route: 048
     Dates: start: 2009
  5. SYMBICORT [Suspect]
     Route: 055
  6. LEXAPRO [Concomitant]
  7. DIOVAN [Concomitant]
  8. IBUPROFEN [Concomitant]
  9. MORPHINE [Concomitant]
  10. TRAMADOL / ULTRAM [Concomitant]
  11. AMBIEN [Concomitant]
  12. BIAXIN [Concomitant]
  13. NUBANE [Concomitant]
  14. SOMA [Concomitant]
  15. XYZAL [Concomitant]
  16. ZETIN [Concomitant]
  17. KLOR-CON M20 [Concomitant]
  18. FUROSEMIDE [Concomitant]
  19. ALPRAZPLAM [Concomitant]
     Indication: ANXIETY
     Dosage: AS NEEDED
  20. METOLAZONE [Concomitant]
     Indication: WEIGHT INCREASED
     Dosage: AS NEEDED, TAKE FOR TWO DAYS
  21. OMEGA 3 FISH OIL [Concomitant]
  22. RED YEAST RICE [Concomitant]
  23. FLAXSEED OIL [Concomitant]
  24. GLUCOSAMINE [Concomitant]
  25. ALLERGY MEDICATION [Concomitant]
  26. TESSALONE PERLES [Concomitant]
  27. DARVOSET-N [Concomitant]
     Indication: PAIN
  28. POTASSIUM [Concomitant]
     Indication: MEDICAL DIET
  29. LASIX [Concomitant]
     Indication: FLUID RETENTION

REACTIONS (5)
  - Foot fracture [Unknown]
  - Ligament sprain [Unknown]
  - Pain [Unknown]
  - Swelling [Unknown]
  - Off label use [Unknown]
